FAERS Safety Report 26151872 (Version 1)
Quarter: 2025Q4

REPORT INFORMATION
  Report Type: Report from Study
  Country: MX (occurrence: MX)
  Receive Date: 20251214
  Receipt Date: 20251214
  Transmission Date: 20260118
  Serious: Yes (Congenital Anomaly, Other)
  Sender: MERCK KGAA
  Company Number: MX-Merck Healthcare KGaA-2025062528

PATIENT
  Sex: Male
  Weight: 3 kg

DRUGS (1)
  1. REBIF [Suspect]
     Active Substance: INTERFERON BETA-1A
     Indication: Multiple sclerosis
     Dosage: PRODUCT TAKEN BY MOTHER

REACTIONS (3)
  - Cryptorchism [Recovered/Resolved]
  - Congenital inguinal hernia [Recovered/Resolved]
  - Foetal exposure during pregnancy [Recovered/Resolved]
